FAERS Safety Report 12636474 (Version 5)
Quarter: 2017Q1

REPORT INFORMATION
  Report Type: Spontaneous
  Country: JP (occurrence: JP)
  Receive Date: 20160809
  Receipt Date: 20170201
  Transmission Date: 20170428
  Serious: Yes (Hospitalization, Disabling, Other)
  Sender: FDA-Public Use
  Company Number: JP-APOTEX-2016AP010230

PATIENT
  Age: 36 Year
  Sex: Female
  Weight: 57 kg

DRUGS (4)
  1. PAXIL [Suspect]
     Active Substance: PAROXETINE HYDROCHLORIDE
     Indication: DEPRESSION
  2. SOLANAX [Concomitant]
     Active Substance: ALPRAZOLAM
     Indication: PRODUCT USED FOR UNKNOWN INDICATION
     Route: 065
  3. LUNESTA [Suspect]
     Active Substance: ESZOPICLONE
     Indication: ADJUSTMENT DISORDER
     Dosage: 1 MG, UNK
     Route: 048
     Dates: start: 20160606, end: 20160714
  4. PAXIL [Suspect]
     Active Substance: PAROXETINE HYDROCHLORIDE
     Indication: ADJUSTMENT DISORDER
     Dosage: 20 MG, QD
     Route: 048
     Dates: start: 20160613, end: 20160714

REACTIONS (12)
  - Compartment syndrome [Recovering/Resolving]
  - Pain in extremity [Recovered/Resolved]
  - Peripheral swelling [Recovered/Resolved]
  - Motor dysfunction [Recovering/Resolving]
  - Oedema peripheral [Recovering/Resolving]
  - Peripheral coldness [Recovered/Resolved]
  - Cyanosis [Recovered/Resolved]
  - Rhabdomyolysis [Recovered/Resolved]
  - Paraesthesia [Recovering/Resolving]
  - Acute kidney injury [Recovering/Resolving]
  - Off label use [Unknown]
  - Incision site pain [Recovered/Resolved]

NARRATIVE: CASE EVENT DATE: 20160715
